FAERS Safety Report 10384108 (Version 2)
Quarter: 2014Q3

REPORT INFORMATION
  Report Type: Report from Study
  Country: US (occurrence: US)
  Receive Date: 20140814
  Receipt Date: 20140911
  Transmission Date: 20150326
  Serious: Yes (Other)
  Sender: FDA-Public Use
  Company Number: PHEH2014US015525

PATIENT
  Age: 55 Year
  Sex: Female

DRUGS (1)
  1. GILENYA [Suspect]
     Active Substance: FINGOLIMOD HYDROCHLORIDE
     Indication: MULTIPLE SCLEROSIS
     Dosage: 0.5 MG, QD
     Route: 048
     Dates: start: 20111114

REACTIONS (10)
  - Speech disorder [Unknown]
  - Loss of consciousness [Unknown]
  - Tongue discolouration [Unknown]
  - Pain [Unknown]
  - Contusion [Unknown]
  - Sleep disorder [Unknown]
  - Head injury [Unknown]
  - Gait disturbance [Unknown]
  - Wrist fracture [Unknown]
  - Visual impairment [Unknown]

NARRATIVE: CASE EVENT DATE: 20140802
